FAERS Safety Report 24928000 (Version 2)
Quarter: 2025Q1

REPORT INFORMATION
  Report Type: Spontaneous
  Country: FR (occurrence: FR)
  Receive Date: 20250205
  Receipt Date: 20250228
  Transmission Date: 20250408
  Serious: Yes (Disabling, Other)
  Sender: PIERRE FABRE MEDICAMENT
  Company Number: FR-PFM-2025-00480

PATIENT
  Sex: Female
  Weight: 22 kg

DRUGS (2)
  1. PROPRANOLOL HYDROCHLORIDE [Suspect]
     Active Substance: PROPRANOLOL HYDROCHLORIDE
     Indication: Haemangioma
     Dosage: 1.5 MG/KG, BID (2/DAY)
     Dates: start: 20190221, end: 20200526
  2. DOLIPRANE [Concomitant]
     Active Substance: ACETAMINOPHEN
     Indication: Product used for unknown indication
     Route: 065

REACTIONS (3)
  - Speech disorder developmental [Not Recovered/Not Resolved]
  - Developmental delay [Not Recovered/Not Resolved]
  - Behaviour disorder [Unknown]
